FAERS Safety Report 11575639 (Version 1)
Quarter: 2015Q3

REPORT INFORMATION
  Report Type: Spontaneous
  Country: US (occurrence: US)
  Receive Date: 20150916
  Receipt Date: 20150916
  Transmission Date: 20151125
  Serious: No
  Sender: FDA-Public Use
  Company Number: US-ELI_LILLY_AND_COMPANY-US200806000301

PATIENT
  Sex: Female

DRUGS (7)
  1. ACTONEL [Concomitant]
     Active Substance: RISEDRONATE SODIUM
     Dates: start: 2008
  2. PREMARIN [Concomitant]
     Active Substance: ESTROGENS, CONJUGATED
  3. FORTEO [Suspect]
     Active Substance: TERIPARATIDE
     Indication: OSTEOPOROSIS
     Dosage: UNK D/F, UNK
     Dates: start: 200710, end: 200711
  4. VITAMINS NOS [Concomitant]
     Active Substance: VITAMINS
  5. SYNTHROID [Concomitant]
     Active Substance: LEVOTHYROXINE SODIUM
     Indication: BASEDOW^S DISEASE
  6. CARDIZEM CD [Concomitant]
     Active Substance: DILTIAZEM HYDROCHLORIDE
  7. FORTEO [Suspect]
     Active Substance: TERIPARATIDE
     Dosage: UNK D/F, UNK
     Dates: start: 200801, end: 200805

REACTIONS (2)
  - Limb discomfort [Recovered/Resolved]
  - Thyroid neoplasm [Not Recovered/Not Resolved]
